FAERS Safety Report 9688953 (Version 1)
Quarter: 2013Q4

REPORT INFORMATION
  Report Type: Spontaneous
  Country: US (occurrence: US)
  Receive Date: 20131114
  Receipt Date: 20131114
  Transmission Date: 20140711
  Serious: Yes (Hospitalization)
  Sender: FDA-Public Use
  Company Number: US-GLAXOSMITHKLINE-A1049073A

PATIENT
  Sex: Female

DRUGS (4)
  1. ADVAIR [Suspect]
     Indication: ASTHMA
     Dosage: 1PUFF TWICE PER DAY
     Route: 055
     Dates: start: 2002, end: 2013
  2. VENTOLIN HFA [Concomitant]
     Route: 055
  3. PREDNISONE [Concomitant]
  4. VFEND [Concomitant]

REACTIONS (12)
  - Bronchopulmonary aspergillosis [Unknown]
  - Partial lung resection [Unknown]
  - Cataract operation [Unknown]
  - Wheezing [Recovered/Resolved]
  - Cataract [Unknown]
  - Underdose [Recovered/Resolved]
  - Vision blurred [Unknown]
  - Exposure to mould [Unknown]
  - Immune system disorder [Unknown]
  - Haemoptysis [Unknown]
  - Cough [Unknown]
  - Chronic obstructive pulmonary disease [Unknown]
